FAERS Safety Report 5126372-0 (Version None)
Quarter: 2006Q4

REPORT INFORMATION
  Report Type: 
  Country: None (occurrence: None)
  Receive Date: 20061010
  Receipt Date: 20060929
  Transmission Date: 20070319
  Serious: Yes (Hospitalization, Other)
  Sender: FDA-Public Use
  Company Number: 2006SP003470

PATIENT
  Age: 50 Year
  Sex: Female

DRUGS (4)
  1. PEG-INTRON [Suspect]
     Indication: HEPATITIS C
     Dosage: SC
     Route: 058
     Dates: start: 20060718, end: 20060918
  2. REBETOL [Suspect]
     Indication: HEPATITIS C
     Dosage: PO
     Route: 048
     Dates: start: 20060718, end: 20060918
  3. IBUPROFEN [Concomitant]
  4. NATALVIT [Concomitant]

REACTIONS (14)
  - ABNORMAL BEHAVIOUR [None]
  - ANGER [None]
  - BLOOD PRESSURE INCREASED [None]
  - FATIGUE [None]
  - GAIT DISTURBANCE [None]
  - HEADACHE [None]
  - HOMICIDAL IDEATION [None]
  - HYPERHIDROSIS [None]
  - HYPOTHYROIDISM [None]
  - INFECTION [None]
  - JUDGEMENT IMPAIRED [None]
  - LYMPHADENOPATHY [None]
  - PHARYNGEAL OEDEMA [None]
  - VISUAL ACUITY REDUCED [None]
